FAERS Safety Report 4754031-2 (Version None)
Quarter: 2005Q3

REPORT INFORMATION
  Report Type: 
  Country: None (occurrence: None)
  Receive Date: 20050826
  Receipt Date: 20050414
  Transmission Date: 20060218
  Serious: Yes (Hospitalization)
  Sender: FDA-Public Use
  Company Number: US-MERCK-0504USA02887

PATIENT
  Age: 58 Year
  Sex: Male
  Weight: 109 kg

DRUGS (8)
  1. VIOXX [Suspect]
     Indication: BACK PAIN
     Route: 048
     Dates: start: 20001218, end: 20040101
  2. VIOXX [Suspect]
     Route: 048
     Dates: start: 20001218, end: 20040101
  3. CARDURA [Concomitant]
     Indication: PROSTATISM
     Route: 065
     Dates: start: 19990101
  4. ASPIRIN [Concomitant]
     Indication: ANTICOAGULANT THERAPY
     Route: 048
     Dates: start: 19900101
  5. ZOCOR [Concomitant]
     Indication: BLOOD CHOLESTEROL INCREASED
     Route: 048
     Dates: start: 19990101, end: 20050201
  6. ACIPHEX [Concomitant]
     Indication: GASTROOESOPHAGEAL REFLUX DISEASE
     Route: 065
  7. TYLENOL [Concomitant]
     Indication: PAIN
     Route: 065
  8. VITAMIN E [Concomitant]
     Route: 065

REACTIONS (11)
  - CARDIAC OPERATION [None]
  - CHEST PAIN [None]
  - CORONARY ARTERIAL STENT INSERTION [None]
  - CORONARY ARTERY DISEASE [None]
  - CORONARY ARTERY OCCLUSION [None]
  - DYSPEPSIA [None]
  - GASTRIC DISORDER [None]
  - HEART DISEASE CONGENITAL [None]
  - MYOCARDIAL INFARCTION [None]
  - OVERDOSE [None]
  - SLEEP APNOEA SYNDROME [None]
